FAERS Safety Report 16365210 (Version 2)
Quarter: 2021Q1

REPORT INFORMATION
  Report Type: Spontaneous
  Country: JP (occurrence: JP)
  Receive Date: 20190529
  Receipt Date: 20210328
  Transmission Date: 20210419
  Serious: Yes (Other)
  Sender: FDA-Public Use
  Company Number: JP-CELLTRION INC.-2017JP009389

PATIENT

DRUGS (6)
  1. INFLIXIMAB BS FOR I.V. INFUSION100 MG [NK] [Suspect]
     Active Substance: INFLIXIMAB
     Indication: COLITIS ULCERATIVE
     Dosage: 339 MG/BODY/DAY
     Route: 042
     Dates: start: 20161111, end: 20161111
  2. INFLIXIMAB BS FOR I.V. INFUSION100 MG [NK] [Suspect]
     Active Substance: INFLIXIMAB
     Dosage: 339 MG/BODY/DAY
     Route: 042
     Dates: start: 20170623, end: 20170623
  3. INFLIXIMAB BS FOR I.V. INFUSION100 MG [NK] [Suspect]
     Active Substance: INFLIXIMAB
     Dosage: 339 MG/BODY/DAY
     Route: 042
     Dates: start: 20170303, end: 20170303
  4. INFLIXIMAB BS FOR I.V. INFUSION100 MG [NK] [Suspect]
     Active Substance: INFLIXIMAB
     Dosage: 339 MG/BODY/DAY
     Route: 042
     Dates: start: 20170106, end: 20170106
  5. INFLIXIMAB BS FOR I.V. INFUSION100 MG [NK] [Suspect]
     Active Substance: INFLIXIMAB
     Dosage: 339 MG/BODY/DAY
     Route: 042
     Dates: start: 20170428, end: 20170428
  6. ASACOL [Concomitant]
     Active Substance: MESALAMINE
     Indication: COLITIS ULCERATIVE
     Dosage: 3600 MG, DAILY
     Dates: start: 200712

REACTIONS (1)
  - Cutaneous T-cell lymphoma [Recovered/Resolved]

NARRATIVE: CASE EVENT DATE: 201706
